FAERS Safety Report 26004370 (Version 2)
Quarter: 2025Q4

REPORT INFORMATION
  Report Type: Report from Study
  Country: CA (occurrence: CA)
  Receive Date: 20251106
  Receipt Date: 20251111
  Transmission Date: 20260117
  Serious: Yes (Hospitalization, Other)
  Sender: JOHNSON AND JOHNSON
  Company Number: CA-JNJFOC-20251036221

PATIENT
  Age: 62 Year
  Sex: Female

DRUGS (1)
  1. SIMPONI [Suspect]
     Active Substance: GOLIMUMAB
     Indication: Ankylosing spondylitis
     Route: 058

REACTIONS (13)
  - Loss of consciousness [Unknown]
  - Gastric ulcer [Unknown]
  - Blood iron decreased [Unknown]
  - Road traffic accident [Unknown]
  - Otitis externa [Unknown]
  - Cardiac murmur [Unknown]
  - Haemoptysis [Unknown]
  - Epistaxis [Unknown]
  - Diarrhoea [Unknown]
  - Fluid intake reduced [Unknown]
  - Hiatus hernia [Unknown]
  - Eczema [Unknown]
  - Off label use [Unknown]

NARRATIVE: CASE EVENT DATE: 20250101
